FAERS Safety Report 14482329 (Version 1)
Quarter: 2018Q1

REPORT INFORMATION
  Report Type: Spontaneous
  Country: US (occurrence: US)
  Receive Date: 20180202
  Receipt Date: 20180202
  Transmission Date: 20180509
  Serious: Yes (Hospitalization, Other)
  Sender: FDA-Public Use
  Company Number: US-SAOL THERAPEUTICS-0700706006

PATIENT
  Sex: Male

DRUGS (2)
  1. MORPHINE [Suspect]
     Active Substance: MORPHINE
     Route: 037
  2. BACLOFEN. [Suspect]
     Active Substance: BACLOFEN
     Route: 037

REACTIONS (8)
  - Muscle tightness [Unknown]
  - Memory impairment [Unknown]
  - Hip fracture [Unknown]
  - Accidental overdose [Unknown]
  - Performance status decreased [Unknown]
  - Therapy non-responder [Not Recovered/Not Resolved]
  - Arthritis [Unknown]
  - Loss of consciousness [Unknown]
